FAERS Safety Report 12737343 (Version 1)
Quarter: 2016Q3

REPORT INFORMATION
  Report Type: Spontaneous
  Country: GB (occurrence: GB)
  Receive Date: 20160912
  Receipt Date: 20160912
  Transmission Date: 20161109
  Serious: Yes (Death)
  Sender: FDA-Public Use
  Company Number: GB-VALIDUS PHARMACEUTICALS LLC-GB-2016VAL002597

PATIENT
  Age: 68 Year
  Sex: Female

DRUGS (1)
  1. ERGOCALCIFEROL. [Suspect]
     Active Substance: ERGOCALCIFEROL
     Indication: HYPOCALCAEMIA
     Dosage: UNK
     Route: 048

REACTIONS (5)
  - Skin discolouration [Fatal]
  - Blood calcium increased [Fatal]
  - Skin necrosis [Fatal]
  - Calciphylaxis [Fatal]
  - Purpura [Fatal]
